FAERS Safety Report 7835799-5 (Version None)
Quarter: 2011Q4

REPORT INFORMATION
  Report Type: 
  Country: None (occurrence: None)
  Receive Date: 20111024
  Receipt Date: 20111011
  Transmission Date: 20120403
  Serious: Yes (Hospitalization)
  Sender: FDA-Public Use
  Company Number: US-BAYER-201035793NA

PATIENT
  Age: 33 Year
  Sex: Female
  Weight: 123 kg

DRUGS (18)
  1. LEVOXYL [Concomitant]
     Indication: HYPOTHYROIDISM
     Dosage: UNK
     Dates: start: 20050701
  2. IBUPROFEN [Concomitant]
     Indication: PAIN
     Dosage: 600 MG, EVERY 6 HOURS AS NEEDED
     Route: 048
     Dates: start: 20030604, end: 20091202
  3. LOPRESSOR [Concomitant]
     Dosage: 12.5 TO 25 MG
     Route: 048
     Dates: start: 20050603
  4. HEPARIN [Concomitant]
     Dosage: 5000 UNITS BOLUS, DRIP 1000 UNITS/ HOUR, 20 ML/HOUR
     Route: 042
     Dates: start: 20050602, end: 20050603
  5. CLONIDINE [Concomitant]
     Dosage: 0.1 MG, UNK
     Route: 048
     Dates: start: 20050602, end: 20050603
  6. YASMIN [Suspect]
     Indication: CONTRACEPTION
     Route: 048
     Dates: start: 20040101, end: 20050701
  7. IBUPROFEN [Concomitant]
     Indication: NECK PAIN
  8. DIOVAN [Concomitant]
     Dosage: 80 MG, QD
     Route: 048
     Dates: start: 20050601
  9. NITROGLYCERIN [Concomitant]
     Dosage: 0.4 MG AS NEEDED, 0.5 INCH EVERY 6 HOURS
     Dates: start: 20050602, end: 20050603
  10. NSAID'S [Concomitant]
     Dosage: PRN
  11. ASA+CHLORPHENAMINE+PHENYLEPHRINE [Concomitant]
     Dosage: 81 MG, UNK
     Route: 048
     Dates: start: 20050602, end: 20050603
  12. VALSARTAN  AND HYDROCHLOROTHIAZIDE [Concomitant]
     Indication: HYPERTENSION
     Dosage: UNK
     Dates: start: 20050701
  13. DIOVAN HCT [Concomitant]
     Dosage: 80/12.5 TO 160/25 MG DAILY
     Route: 048
     Dates: start: 20050602
  14. NAPROXEN SODIUM AND PSEUDOEPHEDRINE HYDROCHLORIDE [Concomitant]
     Dosage: UNK
     Dates: start: 20050602, end: 20050603
  15. MOTRIN [Concomitant]
     Dosage: UNK UNK, PRN
  16. ANTIBIOTICS [Concomitant]
     Dosage: PRN
     Dates: start: 20000101
  17. TYLENOL-500 [Concomitant]
     Dosage: 650 MG TO 1 GRAM EVERY 4 HOURS AS NEEDED
     Route: 048
     Dates: start: 20050602, end: 20050724
  18. PROTONIX [Concomitant]
     Dosage: 40 MG, QD
     Route: 048
     Dates: start: 20050603

REACTIONS (8)
  - BACK PAIN [None]
  - HEART RATE INCREASED [None]
  - BLOOD PRESSURE INCREASED [None]
  - PULMONARY EMBOLISM [None]
  - CONTUSION [None]
  - EPISTAXIS [None]
  - DYSPNOEA [None]
  - LETHARGY [None]
